FAERS Safety Report 19884631 (Version 1)
Quarter: 2021Q3

REPORT INFORMATION
  Report Type: Spontaneous
  Country: US (occurrence: US)
  Receive Date: 20210927
  Receipt Date: 20210927
  Transmission Date: 20211014
  Serious: No
  Sender: FDA-Public Use
  Company Number: US-DRREDDYS-SPO/USA/21/0140242

PATIENT
  Age: 54 Year
  Sex: Male
  Weight: 51.75 kg

DRUGS (3)
  1. FONDAPARINUX SODIUM 5 MG/0.4 ML [Suspect]
     Active Substance: FONDAPARINUX SODIUM
     Indication: PULMONARY EMBOLISM
     Dosage: STRENGTH: 5MG/0.4ML
     Route: 058
     Dates: start: 2021
  2. PROVENTIL HFA [Concomitant]
     Active Substance: ALBUTEROL SULFATE
     Indication: PRODUCT USED FOR UNKNOWN INDICATION
  3. LEVALBUTEROL SOLUTION [Concomitant]
     Indication: PRODUCT USED FOR UNKNOWN INDICATION

REACTIONS (7)
  - Needle issue [Unknown]
  - Underdose [Unknown]
  - Product quality issue [Unknown]
  - Device deployment issue [Unknown]
  - Product packaging issue [Unknown]
  - Injection site pain [Unknown]
  - Treatment noncompliance [Unknown]
